FAERS Safety Report 14345083 (Version 1)
Quarter: 2018Q1

REPORT INFORMATION
  Report Type: Spontaneous
  Country: US (occurrence: US)
  Receive Date: 20180103
  Receipt Date: 20180103
  Transmission Date: 20180509
  Serious: No
  Sender: FDA-Public Use
  Company Number: US-AUROBINDO-AUR-APU-2017-42209

PATIENT
  Age: 49 Year
  Sex: Male
  Weight: 77.98 kg

DRUGS (1)
  1. ESZOPICLONE  TABLET 2 MG USP [Suspect]
     Active Substance: ESZOPICLONE
     Indication: INSOMNIA
     Dosage: 2 MG, ONCE A DAY
     Route: 065
     Dates: start: 201707, end: 20171003

REACTIONS (1)
  - Drug ineffective [Unknown]

NARRATIVE: CASE EVENT DATE: 201707
